FAERS Safety Report 6476188-8 (Version None)
Quarter: 2009Q4

REPORT INFORMATION
  Report Type: 
  Country: None (occurrence: None)
  Receive Date: 20091206
  Receipt Date: 20081111
  Transmission Date: 20100525
  Serious: No
  Sender: FDA-Public Use
  Company Number: US-ALLERGAN-0814134US

PATIENT
  Sex: Female

DRUGS (1)
  1. ELESTAT [Suspect]
     Indication: SEASONAL ALLERGY
     Dosage: 1 GTT, BID BOTH EYES
     Route: 047
     Dates: start: 20080901, end: 20081106

REACTIONS (3)
  - EYE IRRITATION [None]
  - OCULAR DISCOMFORT [None]
  - VISUAL IMPAIRMENT [None]
